FAERS Safety Report 6192499-8 (Version None)
Quarter: 2009Q2

REPORT INFORMATION
  Report Type: 
  Country: None (occurrence: None)
  Receive Date: 20090518
  Receipt Date: 20090504
  Transmission Date: 20091009
  Serious: Yes (Hospitalization, Congenital Anomaly)
  Sender: FDA-Public Use
  Company Number: DE-AMGEN-US346279

PATIENT
  Sex: Male

DRUGS (1)
  1. ENBREL [Suspect]
     Indication: JUVENILE ARTHRITIS
     Route: 064
     Dates: start: 20040407

REACTIONS (2)
  - CONGENITAL MEGACOLON [None]
  - DRUG EXPOSURE DURING PREGNANCY [None]
